FAERS Safety Report 20101621 (Version 1)
Quarter: 2021Q4

REPORT INFORMATION
  Report Type: Spontaneous
  Country: US (occurrence: None)
  Receive Date: 20211122
  Receipt Date: 20211122
  Transmission Date: 20220303
  Serious: Yes (Hospitalization)
  Sender: FDA-Public Use
  Company Number: None

PATIENT
  Age: 67 Year
  Sex: Female

DRUGS (16)
  1. DOFETILIDE [Suspect]
     Active Substance: DOFETILIDE
     Indication: Atrial fibrillation
     Dosage: FREQUENCY : TWICE A DAY;?
     Route: 048
     Dates: start: 20180504
  2. JANUVIA [Concomitant]
     Active Substance: SITAGLIPTIN PHOSPHATE
  3. GLIMEPIRIDE [Concomitant]
     Active Substance: GLIMEPIRIDE
  4. METHOTREXATE [Concomitant]
     Active Substance: METHOTREXATE
  5. MALTODEXTRIN [Concomitant]
     Active Substance: MALTODEXTRIN
  6. PREDNISONE [Concomitant]
     Active Substance: PREDNISONE
  7. SPIRONO/HCTZ [Concomitant]
  8. VENLAFAXINE [Concomitant]
     Active Substance: VENLAFAXINE HYDROCHLORIDE
  9. ALBUTEROL [Concomitant]
     Active Substance: ALBUTEROL
  10. CARVEDILOL [Concomitant]
     Active Substance: CARVEDILOL
  11. ELIQUIS [Concomitant]
     Active Substance: APIXABAN
  12. LASIX [Concomitant]
     Active Substance: FUROSEMIDE
  13. GABAPENTIN [Concomitant]
     Active Substance: GABAPENTIN
  14. TRULICITY [Concomitant]
     Active Substance: DULAGLUTIDE
  15. METHENAMINE [Concomitant]
     Active Substance: METHENAMINE
  16. MUCINEX [Concomitant]
     Active Substance: GUAIFENESIN

REACTIONS (3)
  - Asthenia [None]
  - Blood iron decreased [None]
  - Dysstasia [None]

NARRATIVE: CASE EVENT DATE: 20211012
